FAERS Safety Report 12896127 (Version 1)
Quarter: 2016Q4

REPORT INFORMATION
  Report Type: Spontaneous
  Country: US (occurrence: US)
  Receive Date: 20161031
  Receipt Date: 20161031
  Transmission Date: 20170207
  Serious: No
  Sender: FDA-Public Use
  Company Number: US-JAZZ-2016-US-016080

PATIENT
  Sex: Female

DRUGS (29)
  1. XYREM [Suspect]
     Active Substance: SODIUM OXYBATE
     Indication: NARCOLEPSY
     Dosage: 2.5 G, BID
     Route: 048
     Dates: start: 200612, end: 200704
  2. XYREM [Suspect]
     Active Substance: SODIUM OXYBATE
     Dosage: 3 G, BID
     Route: 048
     Dates: start: 201406, end: 201411
  3. DEXTROAMPHETAMINE. [Concomitant]
     Active Substance: DEXTROAMPHETAMINE
  4. ESTRADIOL. [Concomitant]
     Active Substance: ESTRADIOL
  5. MULTIVITAMINS [Concomitant]
     Active Substance: VITAMINS
  6. LEXAPRO [Concomitant]
     Active Substance: ESCITALOPRAM OXALATE
  7. PROVIGIL [Concomitant]
     Active Substance: MODAFINIL
  8. NEXIUM [Concomitant]
     Active Substance: ESOMEPRAZOLE MAGNESIUM
  9. ADDERALL [Concomitant]
     Active Substance: AMPHETAMINE ASPARTATE\AMPHETAMINE SULFATE\DEXTROAMPHETAMINE SACCHARATE\DEXTROAMPHETAMINE SULFATE
  10. XYREM [Suspect]
     Active Substance: SODIUM OXYBATE
     Dosage: DOSE ADJUSTMENTS
     Route: 048
     Dates: start: 200704, end: 201007
  11. ESCITALOPRAM [Concomitant]
     Active Substance: ESCITALOPRAM OXALATE
  12. MAGNESIUM OXIDE. [Concomitant]
     Active Substance: MAGNESIUM OXIDE
  13. TYLENOL [Concomitant]
     Active Substance: ACETAMINOPHEN
  14. SEROQUEL [Concomitant]
     Active Substance: QUETIAPINE FUMARATE
  15. XYREM [Suspect]
     Active Substance: SODIUM OXYBATE
     Dosage: 4.5 G, BID
     Route: 048
     Dates: start: 201411
  16. ALDACTONE [Concomitant]
     Active Substance: SPIRONOLACTONE
  17. VITAMIN C [Concomitant]
     Active Substance: ASCORBIC ACID
  18. NUVIGIL [Concomitant]
     Active Substance: ARMODAFINIL
  19. OVCON-35 - 28 [Concomitant]
  20. XYREM [Suspect]
     Active Substance: SODIUM OXYBATE
     Dosage: 4.5 G, BID
     Route: 048
     Dates: start: 201007, end: 2011
  21. GABAPENTIN. [Concomitant]
     Active Substance: GABAPENTIN
  22. NOVOLOG [Concomitant]
     Active Substance: INSULIN ASPART
  23. PROBIOTIC [Concomitant]
     Active Substance: PROBIOTICS NOS
  24. MEDROXYPROGESTERONE [Concomitant]
     Active Substance: MEDROXYPROGESTERONE
  25. LAMICTAL [Concomitant]
     Active Substance: LAMOTRIGINE
  26. IBUPROFEN. [Concomitant]
     Active Substance: IBUPROFEN
  27. MIRALAX [Concomitant]
     Active Substance: POLYETHYLENE GLYCOL 3350
  28. ABILIFY [Concomitant]
     Active Substance: ARIPIPRAZOLE
  29. ADDERALL XR [Concomitant]
     Active Substance: AMPHETAMINE ASPARTATE\AMPHETAMINE SULFATE\DEXTROAMPHETAMINE SACCHARATE\DEXTROAMPHETAMINE SULFATE

REACTIONS (1)
  - Therapeutic response decreased [Unknown]
